FAERS Safety Report 5486879-3 (Version None)
Quarter: 2007Q4

REPORT INFORMATION
  Report Type: 
  Country: None (occurrence: None)
  Receive Date: 20071012
  Receipt Date: 20071012
  Transmission Date: 20080405
  Serious: No
  Sender: FDA-Public Use
  Company Number: None

PATIENT
  Sex: Female
  Weight: 58 kg

DRUGS (2)
  1. CARBOPLATIN [Suspect]
     Dosage: 433 MG
     Dates: end: 20070925
  2. TAXOL [Suspect]
     Dosage: 289 MG
     Dates: end: 20070925

REACTIONS (7)
  - ABDOMINAL PAIN [None]
  - ANAEMIA [None]
  - ASTHENIA [None]
  - DEHYDRATION [None]
  - DIARRHOEA [None]
  - PARACENTESIS [None]
  - VOMITING [None]
